FAERS Safety Report 16497649 (Version 3)
Quarter: 2019Q3

REPORT INFORMATION
  Report Type: Spontaneous
  Country: AR (occurrence: AR)
  Receive Date: 20190628
  Receipt Date: 20190930
  Transmission Date: 20191004
  Serious: Yes (Other)
  Sender: FDA-Public Use
  Company Number: AR-MYLANLABS-2017M1062936

PATIENT
  Age: 35 Year
  Sex: Male

DRUGS (1)
  1. LAPENAX [Suspect]
     Active Substance: CLOZAPINE
     Indication: BORDERLINE PERSONALITY DISORDER
     Dosage: 350 MG, QD
     Dates: start: 20140101

REACTIONS (7)
  - Granulocytopenia [Unknown]
  - Product use in unapproved indication [Not Recovered/Not Resolved]
  - Leukocytosis [Recovered/Resolved]
  - Lymphocyte count decreased [Recovering/Resolving]
  - Leukopenia [Unknown]
  - Neutrophilia [Recovering/Resolving]
  - Eosinophil count increased [Unknown]

NARRATIVE: CASE EVENT DATE: 20140101
